FAERS Safety Report 7807121-1 (Version None)
Quarter: 2011Q4

REPORT INFORMATION
  Report Type: 
  Country: None (occurrence: None)
  Receive Date: 20111011
  Receipt Date: 20110928
  Transmission Date: 20120403
  Serious: Yes (Hospitalization, Other)
  Sender: FDA-Public Use
  Company Number: US-ELI_LILLY_AND_COMPANY-US201103006520

PATIENT
  Sex: Female

DRUGS (4)
  1. FORTEO [Suspect]
     Indication: OSTEOPOROSIS
     Dosage: 20 UG, QD
     Route: 058
     Dates: start: 20110204
  2. FORTEO [Suspect]
     Dosage: 20 UG, QD
     Route: 058
  3. FORTEO [Suspect]
     Dosage: 20 UG, QD
     Route: 058
  4. FORTEO [Suspect]
     Dosage: 20 UG, QD
     Route: 058

REACTIONS (12)
  - LOWER LIMB FRACTURE [None]
  - HIP FRACTURE [None]
  - CONSTIPATION [None]
  - DYSPNOEA [None]
  - DIZZINESS [None]
  - INJECTION SITE PAIN [None]
  - FALL [None]
  - GAIT DISTURBANCE [None]
  - INJECTION SITE MASS [None]
  - INJECTION SITE HAEMATOMA [None]
  - RESPIRATORY DISORDER [None]
  - MALAISE [None]
